FAERS Safety Report 21244555 (Version 1)
Quarter: 2022Q3

REPORT INFORMATION
  Report Type: Other
  Country: None (occurrence: CA)
  Receive Date: 20220823
  Receipt Date: 20220823
  Transmission Date: 20221026
  Serious: Yes (Other)
  Sender: FDA-Public Use
  Company Number: CA-Stallergenes SAS-2132146

PATIENT
  Age: 9 Year
  Sex: Male

DRUGS (1)
  1. ORALAIR [Suspect]
     Active Substance: ANTHOXANTHUM ODORATUM POLLEN\DACTYLIS GLOMERATA POLLEN\LOLIUM PERENNE POLLEN\PHLEUM PRATENSE POLLEN\
     Indication: Seasonal allergy
     Route: 060

REACTIONS (8)
  - Angioedema [Recovered/Resolved]
  - Emotional distress [Recovered/Resolved]
  - Oropharyngeal discomfort [Recovered/Resolved]
  - Oral discomfort [Recovered/Resolved]
  - Ear pruritus [Recovered/Resolved]
  - Oedema mouth [Recovered/Resolved]
  - Oral pruritus [Recovered/Resolved]
  - Ear pruritus [Recovered/Resolved]
